FAERS Safety Report 5721570-7 (Version None)
Quarter: 2008Q2

REPORT INFORMATION
  Report Type: 
  Country: None (occurrence: None)
  Receive Date: 20080429
  Receipt Date: 20070202
  Transmission Date: 20081010
  Serious: No
  Sender: FDA-Public Use
  Company Number: US-ASTRAZENECA-2007UW02220

PATIENT
  Age: 46 Year
  Sex: Male
  Weight: 145.1 kg

DRUGS (3)
  1. NEXIUM [Suspect]
     Indication: GASTROOESOPHAGEAL REFLUX DISEASE
     Route: 048
     Dates: start: 20061101, end: 20061225
  2. NEXIUM [Suspect]
     Route: 048
     Dates: start: 20051101, end: 20061101
  3. LISINOPRIL [Concomitant]

REACTIONS (2)
  - LOOSE TOOTH [None]
  - PAIN IN EXTREMITY [None]
